FAERS Safety Report 5258874-0 (Version None)
Quarter: 2007Q1

REPORT INFORMATION
  Report Type: 
  Country: None (occurrence: None)
  Receive Date: 20070306
  Receipt Date: 20070306
  Transmission Date: 20070707
  Serious: Yes (Other)
  Sender: FDA-Public Use
  Company Number: None

PATIENT
  Sex: Female

DRUGS (2)
  1. ARANESP [Suspect]
     Indication: CHEMOTHERAPY
     Dates: start: 20051005, end: 20070112
  2. ARANESP [Suspect]
     Indication: RED BLOOD CELL COUNT DECREASED
     Dates: start: 20051005, end: 20070112

REACTIONS (5)
  - CARDIAC FAILURE [None]
  - DYSPNOEA [None]
  - HAEMOGLOBIN DECREASED [None]
  - HYPERTENSION [None]
  - PULMONARY OEDEMA [None]
